FAERS Safety Report 6732696-3 (Version None)
Quarter: 2010Q2

REPORT INFORMATION
  Report Type: 
  Country: None (occurrence: None)
  Receive Date: 20100519
  Receipt Date: 20100303
  Transmission Date: 20101027
  Serious: No
  Sender: FDA-Public Use
  Company Number: US-BRISTOL-MYERS SQUIBB COMPANY-15000425

PATIENT
  Age: 70 Year
  Sex: Male

DRUGS (5)
  1. BARACLUDE [Suspect]
     Indication: HEPATIC NEOPLASM MALIGNANT
  2. COLESTID [Concomitant]
  3. JANUVIA [Concomitant]
  4. LOTREL [Concomitant]
  5. COUMADIN [Concomitant]

REACTIONS (1)
  - BLOOD BILIRUBIN INCREASED [None]
